FAERS Safety Report 5940617-6 (Version None)
Quarter: 2008Q4

REPORT INFORMATION
  Report Type: 
  Country: None (occurrence: None)
  Receive Date: 20081104
  Receipt Date: 20081027
  Transmission Date: 20090506
  Serious: Yes (Other)
  Sender: FDA-Public Use
  Company Number: US-PURDUE-USA_2008_0034468

PATIENT
  Age: 57 Year
  Sex: Male

DRUGS (2)
  1. SERZONE [Concomitant]
     Indication: DRUG USE FOR UNKNOWN INDICATION
     Dosage: 100 MG, HS
  2. OXYCONTIN [Suspect]
     Indication: PAIN
     Dosage: 40 MG, Q12H
     Dates: start: 20000305, end: 20000710

REACTIONS (3)
  - COGNITIVE DISORDER [None]
  - DIZZINESS [None]
  - MYOCARDIAL INFARCTION [None]
